FAERS Safety Report 15043714 (Version 1)
Quarter: 2018Q2

REPORT INFORMATION
  Report Type: Report from Study
  Country: GB (occurrence: GB)
  Receive Date: 20180621
  Receipt Date: 20180621
  Transmission Date: 20180711
  Serious: Yes (Other)
  Sender: FDA-Public Use
  Company Number: GB-ASTELLAS-2018US027838

PATIENT
  Age: 50 Year
  Sex: Female

DRUGS (1)
  1. TACROLIMUS. [Suspect]
     Active Substance: TACROLIMUS
     Indication: ORGAN TRANSPLANT
     Dosage: UNK UNK, UNKNOWN FREQ.
     Route: 065

REACTIONS (6)
  - Graft versus host disease [Recovered/Resolved]
  - Cytomegalovirus colitis [Unknown]
  - Product use in unapproved indication [Unknown]
  - Cytomegalovirus viraemia [Unknown]
  - Cytomegalovirus enteritis [Unknown]
  - Off label use [Unknown]
